FAERS Safety Report 20690123 (Version 2)
Quarter: 2022Q2

REPORT INFORMATION
  Report Type: Spontaneous
  Country: AR (occurrence: AR)
  Receive Date: 20220408
  Receipt Date: 20220411
  Transmission Date: 20220720
  Serious: Yes (Other)
  Sender: FDA-Public Use
  Company Number: AR-009507513-2204ARG001790

PATIENT
  Sex: Female

DRUGS (2)
  1. PEMBROLIZUMAB [Suspect]
     Active Substance: PEMBROLIZUMAB
     Indication: Lung adenocarcinoma
     Dosage: 200 MILLIGRAM, EVERY 3 WEEKS, RECEIVED 4 CYCLES
  2. PEMBROLIZUMAB [Suspect]
     Active Substance: PEMBROLIZUMAB
     Dosage: 200 MILLIGRAM, EVERY 3 WEEKS, WITH INTENTION OF COMPLETING 2 YEARS OF TREATMENT

REACTIONS (2)
  - Lung neoplasm surgery [Unknown]
  - Off label use [Unknown]

NARRATIVE: CASE EVENT DATE: 20210701
